FAERS Safety Report 11507383 (Version 1)
Quarter: 2015Q3

REPORT INFORMATION
  Report Type: Report from Study
  Country: DE (occurrence: DE)
  Receive Date: 20150915
  Receipt Date: 20150915
  Transmission Date: 20151125
  Serious: Yes (Death, Hospitalization, Other)
  Sender: FDA-Public Use
  Company Number: DE-CELGENE-DEU-2015086471

PATIENT
  Age: 73 Year
  Sex: Male

DRUGS (4)
  1. THALIDOMIDE [Suspect]
     Active Substance: THALIDOMIDE
     Indication: MYELODYSPLASTIC SYNDROME
     Route: 048
     Dates: start: 200506, end: 200509
  2. PLATELETS [Concomitant]
     Active Substance: HUMAN PLATELET, ALLOGENIC
     Indication: MYELODYSPLASTIC SYNDROME
     Route: 041
  3. ERYTHROCYTES [Concomitant]
     Active Substance: HUMAN RED BLOOD CELL
     Indication: MYELODYSPLASTIC SYNDROME
     Route: 041
  4. REVLIMID [Suspect]
     Active Substance: LENALIDOMIDE
     Indication: MYELODYSPLASTIC SYNDROME
     Route: 048
     Dates: start: 200809, end: 200903

REACTIONS (9)
  - Dizziness [Unknown]
  - Muscular weakness [Unknown]
  - Prostate cancer metastatic [Fatal]
  - Psychomotor retardation [Unknown]
  - Cerebral haemorrhage [Unknown]
  - General physical health deterioration [Unknown]
  - Hallucination, visual [Unknown]
  - Pancytopenia [Unknown]
  - Cough [Unknown]

NARRATIVE: CASE EVENT DATE: 20090527
